FAERS Safety Report 13487442 (Version 1)
Quarter: 2017Q2

REPORT INFORMATION
  Report Type: Spontaneous
  Country: US (occurrence: US)
  Receive Date: 20170426
  Receipt Date: 20170426
  Transmission Date: 20170830
  Serious: No
  Sender: FDA-Public Use
  Company Number: US-ALKERMES INC.-ALK-2016-002892

PATIENT
  Age: 41 Year
  Sex: Female

DRUGS (2)
  1. VIVITROL [Suspect]
     Active Substance: NALTREXONE
     Indication: DRUG USE DISORDER
     Dosage: 380 MG, QMO
     Route: 030
     Dates: start: 20160928
  2. SUBUTEX [Concomitant]
     Active Substance: BUPRENORPHINE HYDROCHLORIDE
     Indication: DRUG USE DISORDER
     Dosage: UNK
     Route: 065
     Dates: end: 20160927

REACTIONS (8)
  - Cold sweat [Unknown]
  - Withdrawal syndrome [Unknown]
  - Hot flush [Unknown]
  - Restless legs syndrome [Unknown]
  - Restlessness [Unknown]
  - Drug administration error [Recovered/Resolved]
  - Back pain [Unknown]
  - Irritability [Unknown]

NARRATIVE: CASE EVENT DATE: 20160928
